FAERS Safety Report 21619685 (Version 3)
Quarter: 2023Q1

REPORT INFORMATION
  Report Type: Spontaneous
  Country: US (occurrence: US)
  Receive Date: 20221121
  Receipt Date: 20230210
  Transmission Date: 20230418
  Serious: Yes (Other)
  Sender: FDA-Public Use
  Company Number: US-ABBVIE-4207443

PATIENT
  Age: 11 Year
  Sex: Male
  Weight: 33 kg

DRUGS (4)
  1. LUPRON [Suspect]
     Active Substance: LEUPROLIDE ACETATE
     Indication: Pubertal disorder
     Route: 065
     Dates: start: 20220805, end: 20220805
  2. FLONASE [Concomitant]
     Active Substance: FLUTICASONE PROPIONATE
     Indication: Hypersensitivity
     Dosage: 2 SPRAYS DAILY
     Route: 045
     Dates: start: 20190912
  3. CLARITIN [Concomitant]
     Active Substance: LORATADINE
     Indication: Hypersensitivity
     Dates: start: 20180829
  4. MIRALE [Concomitant]
     Indication: Constipation
     Route: 048
     Dates: start: 20221212

REACTIONS (2)
  - Granuloma [Recovering/Resolving]
  - Pain [Recovering/Resolving]

NARRATIVE: CASE EVENT DATE: 20221001
